FAERS Safety Report 10153304 (Version 1)
Quarter: 2014Q2

REPORT INFORMATION
  Report Type: Spontaneous
  Country: US (occurrence: US)
  Receive Date: 20140505
  Receipt Date: 20140505
  Transmission Date: 20141212
  Serious: No
  Sender: FDA-Public Use
  Company Number: US-ASTRAZENECA-2013SE23721

PATIENT
  Age: 89 Year
  Sex: Male

DRUGS (4)
  1. OMEPRAZOLE [Suspect]
     Indication: HELICOBACTER INFECTION
     Route: 048
  2. AMOXICILLIN [Interacting]
     Indication: HELICOBACTER INFECTION
  3. CLARITHROMYCIN [Interacting]
     Indication: HELICOBACTER INFECTION
  4. GLIBENCLAMIDE [Interacting]
     Indication: TYPE 2 DIABETES MELLITUS

REACTIONS (2)
  - Drug interaction [Unknown]
  - Hypoglycaemia [Unknown]
